FAERS Safety Report 8971975 (Version 2)
Quarter: 2014Q1

REPORT INFORMATION
  Report Type: Spontaneous
  Country: US (occurrence: US)
  Receive Date: 20121218
  Receipt Date: 20140114
  Transmission Date: 20141002
  Serious: No
  Sender: FDA-Public Use
  Company Number: US-PFIZER INC-2012311316

PATIENT
  Age: 61 Year
  Sex: Female

DRUGS (2)
  1. GABAPENTIN [Suspect]
     Indication: MULTIPLE SCLEROSIS
     Dosage: UNK
  2. AMITRIPTYLINE [Suspect]
     Indication: MULTIPLE SCLEROSIS
     Dosage: UNK

REACTIONS (3)
  - Off label use [Unknown]
  - Drug ineffective [Unknown]
  - Dry mouth [Unknown]
